FAERS Safety Report 5087539-3 (Version None)
Quarter: 2006Q3

REPORT INFORMATION
  Report Type: 
  Country: None (occurrence: None)
  Receive Date: 20060824
  Receipt Date: 20060818
  Transmission Date: 20061208
  Serious: Yes (Hospitalization)
  Sender: FDA-Public Use
  Company Number: FR-GLAXOSMITHKLINE-B0434798A

PATIENT
  Age: 51 Year
  Sex: Female

DRUGS (9)
  1. ZELITREX [Suspect]
     Dosage: 500MG TWICE PER DAY
     Route: 048
     Dates: start: 20051101
  2. RANIPLEX [Suspect]
     Dosage: 150MG PER DAY
     Route: 048
  3. RAPAMUNE [Suspect]
     Dosage: 1MG PER DAY
     Route: 048
     Dates: end: 20051212
  4. CORTANCYL [Suspect]
     Dosage: 2MG PER DAY
     Route: 048
     Dates: start: 20051101
  5. AMLODIPINE BESYLATE [Suspect]
     Dosage: 5MG PER DAY
     Route: 048
  6. PROGRAF [Suspect]
     Dosage: 1MG TWICE PER DAY
     Route: 048
     Dates: start: 20051101
  7. ARANESP [Concomitant]
     Route: 065
  8. EUCALCIC [Concomitant]
     Route: 065
  9. XANAX [Concomitant]
     Route: 065

REACTIONS (7)
  - BLOOD CREATININE INCREASED [None]
  - DEEP VEIN THROMBOSIS [None]
  - LYMPHOCELE [None]
  - OEDEMA PERIPHERAL [None]
  - PAIN [None]
  - SENSATION OF HEAVINESS [None]
  - THROMBOPHLEBITIS SUPERFICIAL [None]
